FAERS Safety Report 5818847-3 (Version None)
Quarter: 2008Q3

REPORT INFORMATION
  Report Type: 
  Country: None (occurrence: None)
  Receive Date: 20080723
  Receipt Date: 20080714
  Transmission Date: 20090109
  Serious: Yes (Hospitalization, Other)
  Sender: FDA-Public Use
  Company Number: US-PURDUE-USA_2008_0033942

PATIENT
  Age: 60 Year
  Sex: Female

DRUGS (8)
  1. OXYCONTIN [Suspect]
     Indication: DRUG USE FOR UNKNOWN INDICATION
     Dosage: UNK, UNK
     Dates: start: 20051201
  2. ENBREL [Suspect]
     Indication: RHEUMATOID ARTHRITIS
     Dosage: 50 MG, SEE TEXT
     Route: 058
     Dates: start: 20000310
  3. DEXTROPROPOXYPHENE/ PARACETAMOL [Suspect]
     Indication: DRUG USE FOR UNKNOWN INDICATION
     Dosage: UNK, PRN
  4. PREDNISONE TAB [Concomitant]
     Dosage: 3 MG, SEE TEXT
     Route: 048
  5. TRILISATE [Concomitant]
  6. GABAPENTIN [Concomitant]
     Dosage: 400 MG, DAILY
     Route: 048
  7. ESOMEPRAZOLE MAGNESIUM [Concomitant]
     Dosage: 40 MG, DAILY
     Route: 048
  8. FEXOFENADINE [Concomitant]

REACTIONS (8)
  - ADRENAL INSUFFICIENCY [None]
  - BILE DUCT STONE [None]
  - BLOOD TRIGLYCERIDES INCREASED [None]
  - DUODENITIS [None]
  - DYSPNOEA [None]
  - INFLUENZA LIKE ILLNESS [None]
  - JOINT DISLOCATION [None]
  - PANCREATITIS ACUTE [None]
